FAERS Safety Report 5023279-4 (Version None)
Quarter: 2006Q2

REPORT INFORMATION
  Report Type: 
  Country: None (occurrence: None)
  Receive Date: 20060502
  Receipt Date: 20051102
  Transmission Date: 20061013
  Serious: Yes (Life-Threatening, Other)
  Sender: FDA-Public Use
  Company Number: NARC20050003

PATIENT
  Age: 1 Day
  Sex: Male
  Weight: 3.2 kg

DRUGS (1)
  1. NARCAN [Suspect]
     Indication: REVERSAL OF OPIATE ACTIVITY
     Dosage: 200(?) TRANSPLACENTAL
     Route: 064
     Dates: start: 20050924, end: 20050924

REACTIONS (1)
  - CARDIAC ARREST [None]
